FAERS Safety Report 5889052-X (Version None)
Quarter: 2008Q3

REPORT INFORMATION
  Report Type: 
  Country: None (occurrence: None)
  Receive Date: 20080919
  Receipt Date: 20080530
  Transmission Date: 20090109
  Serious: No
  Sender: FDA-Public Use
  Company Number: US-KINGPHARMUSA00001-K200800623

PATIENT

DRUGS (4)
  1. SONATA [Suspect]
     Indication: INSOMNIA
     Dosage: 5 MG, QHS
     Dates: start: 20080403, end: 20080403
  2. SONATA [Suspect]
     Dosage: 10 MG, QHS
     Dates: start: 20080404, end: 20080405
  3. LIPITOR [Concomitant]
     Dosage: 40 MG, QD
  4. PREVACID [Concomitant]
     Dosage: 30 MG, QD

REACTIONS (5)
  - ANGER [None]
  - DEPRESSED MOOD [None]
  - DRUG EFFECT DECREASED [None]
  - HEADACHE [None]
  - MIDDLE INSOMNIA [None]
